FAERS Safety Report 18611042 (Version 1)
Quarter: 2020Q4

REPORT INFORMATION
  Report Type: Spontaneous
  Country: CN (occurrence: CN)
  Receive Date: 20201214
  Receipt Date: 20201214
  Transmission Date: 20210114
  Serious: Yes (Hospitalization, Other)
  Sender: FDA-Public Use
  Company Number: CN-ASTRAZENECA-2020SF66289

PATIENT
  Age: 24419 Day
  Sex: Female
  Weight: 60 kg

DRUGS (2)
  1. DAPAGLIFLOZIN. [Suspect]
     Active Substance: DAPAGLIFLOZIN
     Indication: BLOOD GLUCOSE ABNORMAL
     Route: 048
     Dates: start: 20200614, end: 20201117
  2. DAPAGLIFLOZIN. [Suspect]
     Active Substance: DAPAGLIFLOZIN
     Indication: BLOOD GLUCOSE ABNORMAL
     Route: 048
     Dates: start: 20200325, end: 20200607

REACTIONS (4)
  - Weight decreased [Recovered/Resolved]
  - Decreased appetite [Unknown]
  - Cachexia [Unknown]
  - Asthenia [Unknown]

NARRATIVE: CASE EVENT DATE: 20201117
